FAERS Safety Report 5336728-9 (Version None)
Quarter: 2007Q2

REPORT INFORMATION
  Report Type: 
  Country: None (occurrence: None)
  Receive Date: 20070529
  Receipt Date: 20070521
  Transmission Date: 20071010
  Serious: Yes (Life-Threatening, Hospitalization)
  Sender: FDA-Public Use
  Company Number: PHHO2007DE08557

PATIENT
  Age: 63 Year
  Sex: Female
  Weight: 82 kg

DRUGS (1)
  1. EXJADE [Suspect]
     Indication: BLOOD IRON INCREASED
     Dosage: 1875 MG, QD
     Route: 048
     Dates: start: 20060614, end: 20070506

REACTIONS (4)
  - COLITIS [None]
  - DIARRHOEA [None]
  - MUCOSAL INFLAMMATION [None]
  - PYREXIA [None]
